FAERS Safety Report 7131199-4 (Version None)
Quarter: 2010Q4

REPORT INFORMATION
  Report Type: 
  Country: None (occurrence: None)
  Receive Date: 20101201
  Receipt Date: 20101122
  Transmission Date: 20110411
  Serious: Yes (Hospitalization)
  Sender: FDA-Public Use
  Company Number: DE-NOVOPROD-315760

PATIENT
  Sex: Female
  Weight: 134 kg

DRUGS (3)
  1. VICTOZA [Suspect]
     Indication: DIABETES MELLITUS
     Dosage: 1.2 MG, QD
     Route: 058
     Dates: start: 20100310
  2. METFORMIN HCL [Concomitant]
     Indication: DIABETES MELLITUS
     Dosage: 1000 MG, BID
     Route: 048
     Dates: start: 20091103
  3. RAMIPRIL [Concomitant]
     Dosage: 10 UNK, UNK

REACTIONS (2)
  - BENIGN SALIVARY GLAND NEOPLASM [None]
  - WEIGHT DECREASED [None]
